FAERS Safety Report 8429617-4 (Version None)
Quarter: 2012Q2

REPORT INFORMATION
  Report Type: 
  Country: None (occurrence: None)
  Receive Date: 20120604
  Receipt Date: 20120529
  Transmission Date: 20120825
  Serious: Yes (Other)
  Sender: FDA-Public Use
  Company Number: JP-2012-2225

PATIENT
  Age: 74 Year
  Sex: Male

DRUGS (7)
  1. NAVELBINE [Suspect]
     Indication: LUNG NEOPLASM MALIGNANT
     Dosage: 43.6 MG IV
     Route: 042
     Dates: start: 20120502, end: 20120502
  2. GRANISETRON [Concomitant]
  3. CARVEDILOL [Concomitant]
  4. WARFARIN SODIUM [Concomitant]
  5. NAVELBINE [Suspect]
     Indication: LUNG NEOPLASM MALIGNANT
     Dosage: 43.6 MG IV
     Route: 042
     Dates: start: 20120418, end: 20120418
  6. FAMOTIDINE [Concomitant]
  7. NAVELBINE [Suspect]
     Indication: LUNG NEOPLASM MALIGNANT
     Dosage: 43.6  IV
     Route: 042
     Dates: start: 20120425, end: 20120425

REACTIONS (4)
  - ABDOMINAL PAIN [None]
  - PYREXIA [None]
  - GAIT DISTURBANCE [None]
  - AGRANULOCYTOSIS [None]
